FAERS Safety Report 8685728 (Version 2)
Quarter: 2012Q4

REPORT INFORMATION
  Report Type: 
  Country: FR (occurrence: FR)
  Receive Date: 20120726
  Receipt Date: 20121107
  Transmission Date: 20130627
  Serious: Yes (Hospitalization)
  Sender: FDA-Public Use
  Company Number: FR-ABBOTT-12P-163-0957333-00

PATIENT
  Age: 60 Year
  Sex: Male

DRUGS (1)
  1. MICROPAKINE [Suspect]
     Indication: EPILEPSY

REACTIONS (2)
  - Therapy regimen changed [Unknown]
  - Convulsion [Recovered/Resolved]
